FAERS Safety Report 8504911-7 (Version None)
Quarter: 2012Q3

REPORT INFORMATION
  Report Type: 
  Country: None (occurrence: None)
  Receive Date: 20120712
  Receipt Date: 20120708
  Transmission Date: 20120928
  Serious: Yes (Hospitalization)
  Sender: FDA-Public Use
  Company Number: PHHY2012MX059493

PATIENT
  Sex: Female

DRUGS (1)
  1. DIOVAN HCT [Suspect]
     Indication: HYPERTENSION
     Dosage: 1 DF(VALS 160MG AND HCTZ 12.5 MG), DAILY
     Dates: start: 20100401

REACTIONS (3)
  - FALL [None]
  - BLOOD GLUCOSE INCREASED [None]
  - INFECTION [None]
